FAERS Safety Report 20489623 (Version 2)
Quarter: 2022Q2

REPORT INFORMATION
  Report Type: Spontaneous
  Country: CA (occurrence: CA)
  Receive Date: 20220218
  Receipt Date: 20220429
  Transmission Date: 20220721
  Serious: Yes (Other)
  Sender: FDA-Public Use
  Company Number: CA-PFIZER INC-202200222939

PATIENT
  Age: 26 Year
  Sex: Male
  Weight: 72 kg

DRUGS (1)
  1. LIDOCAINE HYDROCHLORIDE [Suspect]
     Active Substance: LIDOCAINE HYDROCHLORIDE
     Indication: Synovial cyst
     Dosage: 250 MG
     Dates: start: 20201216

REACTIONS (17)
  - Loss of consciousness [Recovered/Resolved]
  - Mental disorder [Recovered/Resolved]
  - Tinnitus [Recovered/Resolved]
  - Tremor [Recovered/Resolved]
  - Dysgeusia [Recovered/Resolved]
  - Visual impairment [Recovered/Resolved]
  - Hypertensive crisis [Recovered/Resolved]
  - Defect conduction intraventricular [Recovered/Resolved]
  - Angina pectoris [Recovered/Resolved]
  - Paraesthesia [Recovered/Resolved]
  - Muscle twitching [Recovered/Resolved]
  - Hypertensive emergency [Recovered/Resolved]
  - Brain injury [Recovered/Resolved]
  - Renal injury [Recovered/Resolved]
  - Cardiac disorder [Recovered/Resolved]
  - Hypohidrosis [Recovered/Resolved]
  - Deafness unilateral [Recovered/Resolved]
